FAERS Safety Report 12906795 (Version 1)
Quarter: 2016Q4

REPORT INFORMATION
  Report Type: Spontaneous
  Country: US (occurrence: US)
  Receive Date: 20161103
  Receipt Date: 20161103
  Transmission Date: 20170207
  Serious: Yes (Hospitalization)
  Sender: FDA-Public Use
  Company Number: None

PATIENT
  Age: 61 Year
  Sex: Male
  Weight: 75 kg

DRUGS (6)
  1. PRAVASTATIN. [Concomitant]
     Active Substance: PRAVASTATIN
  2. REVLIMID [Suspect]
     Active Substance: LENALIDOMIDE
     Indication: IMMUNOGLOBULIN G4 RELATED DISEASE
     Route: 048
     Dates: start: 20161003, end: 20161012
  3. AMLODIPINE [Concomitant]
     Active Substance: AMLODIPINE BESYLATE
  4. LANSOPRAZOLE. [Concomitant]
     Active Substance: LANSOPRAZOLE
  5. PREDNISONE. [Concomitant]
     Active Substance: PREDNISONE
  6. VITAMIN B12 [Concomitant]
     Active Substance: CYANOCOBALAMIN

REACTIONS (4)
  - Paraesthesia [None]
  - Arthralgia [None]
  - Pain in extremity [None]
  - Neck pain [None]

NARRATIVE: CASE EVENT DATE: 20161012
